FAERS Safety Report 11986481 (Version 5)
Quarter: 2016Q1

REPORT INFORMATION
  Report Type: Report from Study
  Country: US (occurrence: US)
  Receive Date: 20160202
  Receipt Date: 20160309
  Transmission Date: 20160526
  Serious: No
  Sender: FDA-Public Use
  Company Number: US-AMGEN-USASL2016010888

PATIENT
  Age: 64 Year
  Sex: Female

DRUGS (1)
  1. ENBREL [Suspect]
     Active Substance: ETANERCEPT
     Indication: PSORIATIC ARTHROPATHY
     Dosage: 50 MG, WEEKLY
     Route: 065
     Dates: start: 20141023

REACTIONS (9)
  - Hot flush [Not Recovered/Not Resolved]
  - Psoriasis [Recovering/Resolving]
  - Device issue [Unknown]
  - Pain [Unknown]
  - Hypersensitivity [Unknown]
  - Arthralgia [Recovering/Resolving]
  - Cough [Unknown]
  - Vascular rupture [Unknown]
  - Injection site pain [Unknown]

NARRATIVE: CASE EVENT DATE: 201511
